FAERS Safety Report 19991876 (Version 1)
Quarter: 2021Q4

REPORT INFORMATION
  Report Type: Spontaneous
  Country: CA (occurrence: CA)
  Receive Date: 20211025
  Receipt Date: 20211025
  Transmission Date: 20220303
  Serious: Yes (Other)
  Sender: FDA-Public Use
  Company Number: CA-HLS-202108351

PATIENT
  Sex: Female

DRUGS (1)
  1. CLOZARIL [Suspect]
     Active Substance: CLOZAPINE
     Indication: Medication error
     Dosage: SINGLE DOSE IN THE MORNING
     Route: 048
     Dates: start: 20210825

REACTIONS (2)
  - Somnolence [Unknown]
  - Accidental exposure to product [Unknown]
